FAERS Safety Report 20157986 (Version 1)
Quarter: 2021Q4

REPORT INFORMATION
  Report Type: Spontaneous
  Country: US (occurrence: US)
  Receive Date: 20211207
  Receipt Date: 20211207
  Transmission Date: 20220303
  Serious: No
  Sender: FDA-Public Use
  Company Number: US-SA-SAC20211129000261

PATIENT
  Sex: Female

DRUGS (5)
  1. DUPIXENT [Suspect]
     Active Substance: DUPILUMAB
     Indication: Dermatitis atopic
     Dosage: 300 MG, QOW
     Route: 058
     Dates: start: 202111
  2. MONTELUKAST SODIUM [Concomitant]
     Active Substance: MONTELUKAST SODIUM
  3. BETAMETHASONE [Concomitant]
     Active Substance: BETAMETHASONE
  4. CEPHALEXIN SHOWA [Concomitant]
  5. EUCRISA [Concomitant]
     Active Substance: CRISABOROLE

REACTIONS (1)
  - Dermatitis atopic [Unknown]
